FAERS Safety Report 8241289-0 (Version None)
Quarter: 2012Q1

REPORT INFORMATION
  Report Type: 
  Country: None (occurrence: None)
  Receive Date: 20120309
  Receipt Date: 20110511
  Transmission Date: 20120608
  Serious: Yes (Disabling, Other)
  Sender: FDA-Public Use
  Company Number: PHHY2011US25334

PATIENT
  Age: 60 Year
  Sex: Female

DRUGS (6)
  1. LISINOPRIL [Concomitant]
  2. FLUOXETINE [Concomitant]
  3. METFORMIN HCL [Concomitant]
  4. EXTAVIA [Suspect]
     Indication: MULTIPLE SCLEROSIS
     Dosage: 0.3 MG, QOD, SUBCUTANEOUS
     Route: 058
     Dates: start: 20110104, end: 20110307
  5. GLYZIDE [Concomitant]
  6. NOVASTATIN [Concomitant]

REACTIONS (1)
  - DEPRESSION [None]
